FAERS Safety Report 5127447-2 (Version None)
Quarter: 2006Q4

REPORT INFORMATION
  Report Type: 
  Country: None (occurrence: None)
  Receive Date: 20061016
  Receipt Date: 20060529
  Transmission Date: 20070319
  Serious: Yes (Hospitalization, Other)
  Sender: FDA-Public Use
  Company Number: AT-BAYER-200612230GDS

PATIENT
  Age: 84 Year
  Sex: Female

DRUGS (2)
  1. SORAFENIB [Suspect]
     Indication: RENAL CELL CARCINOMA STAGE UNSPECIFIED
     Dosage: UNIT DOSE: 200 MG
     Route: 048
  2. CONCOR [Suspect]
     Indication: HYPERTENSION
     Route: 048
     Dates: start: 20060518, end: 20060613

REACTIONS (1)
  - ISCHAEMIC STROKE [None]
